FAERS Safety Report 15599104 (Version 1)
Quarter: 2018Q4

REPORT INFORMATION
  Report Type: Spontaneous
  Country: US (occurrence: US)
  Receive Date: 20181108
  Receipt Date: 20181108
  Transmission Date: 20190205
  Serious: Yes (Other)
  Sender: FDA-Public Use
  Company Number: None

PATIENT
  Age: 57 Year
  Sex: Female
  Weight: 59.87 kg

DRUGS (1)
  1. LISINOPRIL 10MG [Suspect]
     Active Substance: LISINOPRIL
     Indication: HYPERTENSION
     Route: 048
     Dates: start: 20181026, end: 20181028

REACTIONS (2)
  - Abdominal pain [None]
  - Angioedema [None]

NARRATIVE: CASE EVENT DATE: 20181028
